FAERS Safety Report 7992936-X (Version None)
Quarter: 2011Q4

REPORT INFORMATION
  Report Type: 
  Country: None (occurrence: None)
  Receive Date: 20111219
  Receipt Date: 20110411
  Transmission Date: 20120403
  Serious: No
  Sender: FDA-Public Use
  Company Number: US-ASTRAZENECA-2011SE20980

PATIENT
  Age: 44 Year
  Sex: Female

DRUGS (2)
  1. SYMBICORT [Suspect]
     Dosage: 180/4.5
     Route: 055
  2. CRESTOR [Suspect]
     Route: 048

REACTIONS (1)
  - NASOPHARYNGITIS [None]
